FAERS Safety Report 23296029 (Version 1)
Quarter: 2023Q4

REPORT INFORMATION
  Report Type: Spontaneous
  Country: US (occurrence: None)
  Receive Date: 20231213
  Receipt Date: 20231213
  Transmission Date: 20240109
  Serious: Yes (Other)
  Sender: FDA-Public Use
  Company Number: None

PATIENT
  Age: 47 Year
  Sex: Male

DRUGS (1)
  1. STELARA [Suspect]
     Active Substance: USTEKINUMAB
     Dosage: OTHER FREQUENCY : EVERY 8;?
     Route: 058

REACTIONS (6)
  - Fatigue [None]
  - Nasopharyngitis [None]
  - Pain [None]
  - Pruritus [None]
  - Pruritus [None]
  - Erythema [None]
